FAERS Safety Report 17412767 (Version 2)
Quarter: 2020Q1

REPORT INFORMATION
  Report Type: Report from Study
  Country: CA (occurrence: CA)
  Receive Date: 20200213
  Receipt Date: 20200219
  Transmission Date: 20200409
  Serious: Yes (Hospitalization)
  Sender: FDA-Public Use
  Company Number: CA-IPSEN BIOPHARMACEUTICALS, INC.-2020-02812

PATIENT
  Age: 80 Year
  Sex: Male

DRUGS (1)
  1. SOMATULINE AUTOGEL [Suspect]
     Active Substance: LANREOTIDE ACETATE
     Indication: NEUROENDOCRINE TUMOUR
     Route: 058
     Dates: start: 20190309

REACTIONS (6)
  - Biliary tract disorder [Unknown]
  - Blood pressure increased [Unknown]
  - Fluid retention [Unknown]
  - Respiratory rate increased [Unknown]
  - Heart rate increased [Unknown]
  - Procedural pain [Unknown]

NARRATIVE: CASE EVENT DATE: 202002
